FAERS Safety Report 5660876-7 (Version None)
Quarter: 2008Q1

REPORT INFORMATION
  Report Type: 
  Country: None (occurrence: None)
  Receive Date: 20080311
  Receipt Date: 20080229
  Transmission Date: 20080703
  Serious: Yes (Other)
  Sender: FDA-Public Use
  Company Number: FR-SANOFI-SYNTHELABO-A02200800768

PATIENT
  Sex: Male

DRUGS (6)
  1. GAVISCON [Concomitant]
     Indication: DRUG USE FOR UNKNOWN INDICATION
     Dosage: UNK
     Route: 048
  2. EQUANIL [Concomitant]
     Dosage: UNK
     Route: 048
     Dates: start: 20080111, end: 20080111
  3. VALIUM [Concomitant]
     Dosage: UNK
     Route: 048
     Dates: start: 20080111
  4. AOTAL [Concomitant]
     Dosage: UNK
     Route: 048
     Dates: end: 20080116
  5. STILNOX [Suspect]
     Indication: DRUG USE FOR UNKNOWN INDICATION
     Dosage: UNK
     Route: 048
     Dates: start: 20080111, end: 20080116
  6. OMEPRAZOLE [Concomitant]
     Indication: DRUG USE FOR UNKNOWN INDICATION
     Route: 065

REACTIONS (4)
  - CONDITION AGGRAVATED [None]
  - CYTOLYTIC HEPATITIS [None]
  - SERUM FERRITIN INCREASED [None]
  - TRANSFERRIN SATURATION DECREASED [None]
